FAERS Safety Report 7632556-X (Version None)
Quarter: 2011Q3

REPORT INFORMATION
  Report Type: 
  Country: None (occurrence: None)
  Receive Date: 20110725
  Receipt Date: 20101014
  Transmission Date: 20111222
  Serious: No
  Sender: FDA-Public Use
  Company Number: US-BRISTOL-MYERS SQUIBB COMPANY-15329436

PATIENT
  Age: 62 Year
  Sex: Female

DRUGS (3)
  1. COUMADIN [Suspect]
     Indication: THROMBOSIS
  2. LISINOPRIL [Suspect]
     Indication: HYPERTENSION
  3. COUGH MEDICATION [Suspect]

REACTIONS (2)
  - SINUSITIS [None]
  - BRONCHITIS [None]
